FAERS Safety Report 8586101-5 (Version None)
Quarter: 2012Q3

REPORT INFORMATION
  Report Type: 
  Country: None (occurrence: None)
  Receive Date: 20120810
  Receipt Date: 20120806
  Transmission Date: 20120928
  Serious: No
  Sender: FDA-Public Use
  Company Number: US-TEVA-352471USA

PATIENT
  Sex: Male
  Weight: 106.69 kg

DRUGS (1)
  1. NUVIGIL [Suspect]

REACTIONS (1)
  - DRUG INEFFECTIVE [None]
